FAERS Safety Report 9991706 (Version 1)
Quarter: 2014Q1

REPORT INFORMATION
  Report Type: Spontaneous
  Country: US (occurrence: US)
  Receive Date: 20140310
  Receipt Date: 20140310
  Transmission Date: 20141002
  Serious: Yes (Other)
  Sender: FDA-Public Use
  Company Number: US-BAYER-2014-031499

PATIENT
  Sex: Female
  Weight: 63.99 kg

DRUGS (6)
  1. CIPRO [Suspect]
  2. SIMVASTATIN [Suspect]
     Dosage: UNK
     Dates: start: 2011
  3. ZOCOR [Suspect]
     Dosage: UNK
     Dates: start: 1997
  4. LIPITOR [Suspect]
     Dosage: UNK
     Dates: start: 2002
  5. ZETIA [Suspect]
     Dosage: UNK
     Dates: start: 2009
  6. PLAVIX [Concomitant]

REACTIONS (7)
  - Tendon injury [Not Recovered/Not Resolved]
  - Diabetic neuropathy [Recovering/Resolving]
  - Limb discomfort [None]
  - Unevaluable event [None]
  - Muscle disorder [None]
  - Pain in extremity [Recovering/Resolving]
  - Eating disorder [None]
